FAERS Safety Report 9685449 (Version 2)
Quarter: 2013Q4

REPORT INFORMATION
  Report Type: Report from Study
  Country: US (occurrence: US)
  Receive Date: 20131113
  Receipt Date: 20131113
  Transmission Date: 20140711
  Serious: Yes (Hospitalization)
  Sender: FDA-Public Use
  Company Number: US-ROCHE-1268026

PATIENT
  Age: 55 Year
  Sex: Male
  Weight: 72.64 kg

DRUGS (1)
  1. XELODA [Suspect]
     Indication: COLORECTAL CANCER METASTATIC
     Dosage: 1500 MG EVERY AM, 2000 MG EVERY PM
     Route: 048
     Dates: start: 20130713, end: 20131019

REACTIONS (4)
  - Diarrhoea [Not Recovered/Not Resolved]
  - Pain in extremity [Recovering/Resolving]
  - Blister [Recovering/Resolving]
  - Hernia [Unknown]
